FAERS Safety Report 8520683-4 (Version None)
Quarter: 2012Q3

REPORT INFORMATION
  Report Type: 
  Country: None (occurrence: None)
  Receive Date: 20120719
  Receipt Date: 20120711
  Transmission Date: 20120928
  Serious: Yes (Other)
  Sender: FDA-Public Use
  Company Number: US-SANOFI-AVENTIS-2012SA045156

PATIENT
  Age: 88 Year
  Sex: Female
  Weight: 84.1 kg

DRUGS (11)
  1. ALLEGRA-D 12 HOUR [Suspect]
     Route: 048
     Dates: start: 19980101, end: 20100101
  2. PROAIR HFA [Concomitant]
     Indication: MULTIPLE ALLERGIES
     Dosage: DOSE:2 PUFF(S)
  3. LEVOXYL [Concomitant]
     Indication: THYROID DISORDER
  4. ALLEGRA-D 12 HOUR [Suspect]
     Route: 048
     Dates: start: 20110101
  5. CELEBREX [Concomitant]
     Indication: ARTHRITIS
  6. LOVASTATIN [Concomitant]
  7. MULTI-VITAMINS [Concomitant]
     Indication: VITAMIN SUPPLEMENTATION
  8. GLUCOSAMINE [Concomitant]
  9. ALLEGRA-D 12 HOUR [Suspect]
     Route: 048
     Dates: start: 20110101
  10. ADVIL [Concomitant]
  11. ALLEGRA-D 12 HOUR [Suspect]
     Route: 048
     Dates: start: 20100101, end: 20110101

REACTIONS (4)
  - THYROID DISORDER [None]
  - MACULAR DEGENERATION [None]
  - ABDOMINAL DISCOMFORT [None]
  - KNEE ARTHROPLASTY [None]
